FAERS Safety Report 7395652-0 (Version None)
Quarter: 2011Q2

REPORT INFORMATION
  Report Type: 
  Country: None (occurrence: None)
  Receive Date: 20110405
  Receipt Date: 20110330
  Transmission Date: 20111010
  Serious: Yes (Other)
  Sender: FDA-Public Use
  Company Number: CHPA2011US04739

PATIENT
  Sex: Female
  Weight: 58.957 kg

DRUGS (7)
  1. WELLBUTRIN [Concomitant]
     Indication: DEPRESSION
     Dosage: 300 MG A DAY
     Route: 048
  2. VOLTAREN [Suspect]
     Indication: ARTHRITIS
     Dosage: A LITTLE BIT, JUST A DAB
     Route: 061
     Dates: start: 20110330, end: 20110330
  3. VOLTAREN [Suspect]
     Indication: TENDONITIS
  4. WELCHOL [Concomitant]
     Indication: BLOOD CHOLESTEROL
     Dosage: 625 MG TID
     Route: 048
  5. TRILEPTAL [Concomitant]
     Indication: TRIGEMINAL NEURALGIA
     Dosage: 150 MG BID
     Route: 048
  6. INDERAL [Concomitant]
     Indication: AUTONOMIC NERVOUS SYSTEM IMBALANCE
     Dosage: 20 MG TID
     Route: 048
  7. ASPIRIN [Concomitant]
     Dosage: 80 MG A DAY
     Route: 048

REACTIONS (5)
  - NAUSEA [None]
  - THERAPEUTIC RESPONSE UNEXPECTED [None]
  - PANIC ATTACK [None]
  - DIZZINESS [None]
  - OFF LABEL USE [None]
